FAERS Safety Report 16640551 (Version 1)
Quarter: 2019Q3

REPORT INFORMATION
  Report Type: Spontaneous
  Country: GB (occurrence: GB)
  Receive Date: 20190729
  Receipt Date: 20190729
  Transmission Date: 20191004
  Serious: Yes (Hospitalization, Other)
  Sender: FDA-Public Use
  Company Number: GB-ACCORD-149267

PATIENT
  Age: 77 Year
  Sex: Female
  Weight: 50.4 kg

DRUGS (12)
  1. ATENOLOL/ATENOLOL HYDROCHLORIDE [Concomitant]
  2. COLECALCIFEROL [Concomitant]
     Active Substance: CHOLECALCIFEROL
  3. ACETYLSALICYLIC ACID [Concomitant]
     Active Substance: ASPIRIN
  4. LIDOCAINE. [Concomitant]
     Active Substance: LIDOCAINE
  5. OMEPRAZOLE. [Concomitant]
     Active Substance: OMEPRAZOLE
  6. ITRACONAZOLE. [Suspect]
     Active Substance: ITRACONAZOLE
     Indication: BRONCHOPULMONARY ASPERGILLOSIS
     Route: 048
     Dates: start: 20190531, end: 20190702
  7. LEVOTHYROXINE. [Concomitant]
     Active Substance: LEVOTHYROXINE
  8. PARACETAMOL [Concomitant]
     Active Substance: ACETAMINOPHEN
  9. CALCIUM CARBONATE. [Concomitant]
     Active Substance: CALCIUM CARBONATE
  10. ROSUVASTATIN/ROSUVASTATIN CALCIUM [Concomitant]
  11. SIMVASTATIN. [Interacting]
     Active Substance: SIMVASTATIN
     Indication: PRODUCT USED FOR UNKNOWN INDICATION
  12. SALBUTAMOL [Concomitant]
     Active Substance: ALBUTEROL

REACTIONS (4)
  - Myalgia [Unknown]
  - Myositis [Recovering/Resolving]
  - Muscular weakness [Unknown]
  - Drug interaction [Unknown]

NARRATIVE: CASE EVENT DATE: 20190624
